FAERS Safety Report 13510682 (Version 4)
Quarter: 2018Q3

REPORT INFORMATION
  Report Type: Spontaneous
  Country: US (occurrence: US)
  Receive Date: 20170503
  Receipt Date: 20180918
  Transmission Date: 20181010
  Serious: Yes (Hospitalization)
  Sender: FDA-Public Use
  Company Number: US-ACTELION-A-NJ2017-148943

PATIENT
  Age: 76 Year
  Sex: Female
  Weight: 74.83 kg

DRUGS (1)
  1. OPSUMIT [Suspect]
     Active Substance: MACITENTAN
     Indication: PULMONARY ARTERIAL HYPERTENSION
     Dosage: 10 MG, QD
     Route: 048
     Dates: start: 20170118

REACTIONS (7)
  - Asthenia [Unknown]
  - Arthralgia [Recovered/Resolved]
  - Fall [Unknown]
  - Contusion [Unknown]
  - Osteoarthritis [Unknown]
  - Fatigue [Unknown]
  - Decreased appetite [Unknown]
